FAERS Safety Report 4771445-5 (Version None)
Quarter: 2005Q3

REPORT INFORMATION
  Report Type: 
  Country: None (occurrence: None)
  Receive Date: 20050915
  Receipt Date: 20050906
  Transmission Date: 20060218
  Serious: Yes (Hospitalization, Disabling, Other)
  Sender: FDA-Public Use
  Company Number: 2005125033

PATIENT
  Sex: Female

DRUGS (4)
  1. PREDNISONE [Suspect]
     Indication: SYSTEMIC LUPUS ERYTHEMATOSUS
  2. COUMADIN [Concomitant]
  3. LORAZEPAM [Concomitant]
  4. MULTIVITAMINS AND IRON (MULTIVITAMINS AND IRON) [Concomitant]

REACTIONS (15)
  - ABDOMINAL PAIN UPPER [None]
  - ARTHRALGIA [None]
  - BLOOD POTASSIUM DECREASED [None]
  - CATHETER RELATED COMPLICATION [None]
  - CONSTIPATION [None]
  - FEMUR FRACTURE [None]
  - FIBROMYALGIA [None]
  - HAEMOGLOBIN DECREASED [None]
  - INTERSTITIAL LUNG DISEASE [None]
  - MOBILITY DECREASED [None]
  - PAIN [None]
  - POLLAKIURIA [None]
  - SJOGREN'S SYNDROME [None]
  - URGE INCONTINENCE [None]
  - WEIGHT INCREASED [None]
